FAERS Safety Report 9323023 (Version 2)
Quarter: 2013Q4

REPORT INFORMATION
  Report Type: Spontaneous
  Country: US (occurrence: US)
  Receive Date: 20130603
  Receipt Date: 20131115
  Transmission Date: 20140711
  Serious: Yes (Hospitalization)
  Sender: FDA-Public Use
  Company Number: US-B.I. PHARMACEUTICALS,INC./RIDGEFIELD-2013-BI-14906BP

PATIENT
  Age: 79 Year
  Sex: Male
  Weight: 80.74 kg

DRUGS (8)
  1. PRADAXA [Suspect]
     Indication: ANTICOAGULANT THERAPY
     Dosage: 300 MG
     Route: 048
     Dates: start: 20120421, end: 20120525
  2. PRADAXA [Suspect]
     Indication: ATRIAL FIBRILLATION
  3. ALLOPURINOL [Concomitant]
     Dosage: 100 MG
     Route: 048
  4. AMIODARONE [Concomitant]
     Dosage: 400 MG
     Route: 048
  5. ASPIRIN [Concomitant]
     Dosage: 81 MG
     Dates: end: 20120525
  6. CRESTOR [Concomitant]
     Dosage: 20 MG
  7. LISINOPRIL [Concomitant]
     Dosage: 40 MG
     Route: 048
  8. METOPROLOL XL [Concomitant]
     Dosage: 100 MG
     Route: 048

REACTIONS (3)
  - Upper gastrointestinal haemorrhage [Recovered/Resolved]
  - Anaemia [Unknown]
  - Intermittent claudication [Unknown]
